FAERS Safety Report 9776823 (Version 4)
Quarter: 2014Q1

REPORT INFORMATION
  Report Type: Report from Study
  Country: US (occurrence: US)
  Receive Date: 20131221
  Receipt Date: 20140320
  Transmission Date: 20141002
  Serious: Yes (Other)
  Sender: FDA-Public Use
  Company Number: PHEH2013US025717

PATIENT
  Age: 33 Year
  Sex: Female

DRUGS (9)
  1. GILENYA [Suspect]
     Indication: RELAPSING-REMITTING MULTIPLE SCLEROSIS
     Dosage: 0.5 MG, QD
     Route: 048
     Dates: start: 20120106
  2. GILENYA [Suspect]
     Dosage: 0.5 MG, QOD
     Route: 048
  3. GILENYA [Suspect]
     Dosage: 0.5 MG, EVERY THREE DAYS
     Route: 048
  4. GILENYA [Suspect]
     Dosage: 0.5 MG, THREE TIMES A WEEK
     Route: 048
  5. GILENYA [Suspect]
     Dosage: 0.5 MG, EVERY FOUR DAYS
     Route: 048
  6. FISH OIL [Concomitant]
     Dosage: 1000 MG, UNK
  7. MULTI-VIT [Concomitant]
     Dosage: UNK UKN, UNK
  8. FOLIC ACID W/VITAMIN B12 [Concomitant]
     Dosage: 1 DF, 0.5 MG-1MG
  9. VITAMIN D3 [Concomitant]
     Dosage: 2000 U, UNK

REACTIONS (7)
  - Fatigue [Unknown]
  - Lymphocyte count decreased [Recovering/Resolving]
  - Blindness [Unknown]
  - Feeling of despair [Unknown]
  - Deafness [Unknown]
  - White blood cell count abnormal [Unknown]
  - Prescribed underdose [Unknown]
